FAERS Safety Report 9003833 (Version 2)
Quarter: 2014Q1

REPORT INFORMATION
  Report Type: Spontaneous
  Country: US (occurrence: US)
  Receive Date: 20130108
  Receipt Date: 20140108
  Transmission Date: 20141002
  Serious: No
  Sender: FDA-Public Use
  Company Number: US-GLAXOSMITHKLINE-A0989711A

PATIENT
  Age: 60 Year
  Sex: Female

DRUGS (3)
  1. LOVAZA [Suspect]
     Indication: BLOOD CHOLESTEROL INCREASED
     Dosage: 4CAP PER DAY
     Route: 048
     Dates: start: 20110815
  2. HCTZ HYDROCHLOROTHIAZIDE [Concomitant]
  3. WELCHOL [Concomitant]

REACTIONS (4)
  - Blood cholesterol increased [Not Recovered/Not Resolved]
  - Eructation [Not Recovered/Not Resolved]
  - Gastric disorder [Recovered/Resolved]
  - Drug ineffective [Unknown]
